FAERS Safety Report 5027542-2 (Version None)
Quarter: 2006Q2

REPORT INFORMATION
  Report Type: 
  Country: None (occurrence: None)
  Receive Date: 20060616
  Receipt Date: 20060531
  Transmission Date: 20061013
  Serious: Yes (Hospitalization)
  Sender: FDA-Public Use
  Company Number: PHBS2006JP08332

PATIENT
  Age: 34 Year
  Sex: Female
  Weight: 68.5 kg

DRUGS (2)
  1. DICLOFENAC SODIUM [Suspect]
     Indication: PYREXIA
     Dosage: 50 MG/DAY
     Route: 054
     Dates: start: 20040313
  2. LOXONIN [Suspect]
     Route: 048

REACTIONS (26)
  - ALANINE AMINOTRANSFERASE INCREASED [None]
  - ARTHRALGIA [None]
  - ASPARTATE AMINOTRANSFERASE INCREASED [None]
  - BLOOD ALKALINE PHOSPHATASE INCREASED [None]
  - BLOOD BILIRUBIN INCREASED [None]
  - BLOOD CREATININE INCREASED [None]
  - BLOOD LACTATE DEHYDROGENASE INCREASED [None]
  - BLOOD UREA INCREASED [None]
  - C-REACTIVE PROTEIN INCREASED [None]
  - CARDIOVASCULAR INSUFFICIENCY [None]
  - DEHYDRATION [None]
  - DISSEMINATED INTRAVASCULAR COAGULATION [None]
  - FACE OEDEMA [None]
  - HEPATIC FUNCTION ABNORMAL [None]
  - HYPOCOMPLEMENTAEMIA [None]
  - LIVER DISORDER [None]
  - MALAISE [None]
  - OCCULT BLOOD POSITIVE [None]
  - OLIGURIA [None]
  - ORAL DISCOMFORT [None]
  - PHARYNGOLARYNGEAL PAIN [None]
  - PLATELET COUNT DECREASED [None]
  - PURPURA [None]
  - RENAL IMPAIRMENT [None]
  - RENAL TUBULAR NECROSIS [None]
  - SHOCK [None]
